FAERS Safety Report 6015598-X (Version None)
Quarter: 2008Q4

REPORT INFORMATION
  Report Type: 
  Country: None (occurrence: None)
  Receive Date: 20081216
  Receipt Date: 20000419
  Transmission Date: 20090506
  Serious: Yes (Other)
  Sender: FDA-Public Use
  Company Number: HQ393822APR2000

PATIENT
  Sex: Male

DRUGS (1)
  1. EFFEXOR XR [Suspect]
     Dosage: 187.5 MG DAILY TAPERED DOWN TO 75 MG DAILY THEN INCREASED TO 150 MG DAILY, TRANSPLACENTAL
     Route: 064
     Dates: end: 20000414

REACTIONS (3)
  - CRYING [None]
  - DRUG WITHDRAWAL SYNDROME NEONATAL [None]
  - NERVOUS SYSTEM DISORDER [None]
